FAERS Safety Report 16151575 (Version 2)
Quarter: 2020Q3

REPORT INFORMATION
  Report Type: Report from Study
  Country: MX (occurrence: MX)
  Receive Date: 20190403
  Receipt Date: 20190423
  Transmission Date: 20201104
  Serious: Yes (Hospitalization)
  Sender: FDA-Public Use
  Company Number: MX-JNJFOC-20190341749

PATIENT
  Age: 52 Year
  Sex: Female
  Weight: 54 kg

DRUGS (2)
  1. ESKETAMINE [Suspect]
     Active Substance: ESKETAMINE
     Indication: DEPRESSION
     Route: 045
     Dates: start: 20171113
  2. ESKETAMINE [Suspect]
     Active Substance: ESKETAMINE
     Route: 045

REACTIONS (1)
  - Face injury [Recovered/Resolved]

NARRATIVE: CASE EVENT DATE: 20190321
